FAERS Safety Report 4332296-9 (Version None)
Quarter: 2004Q1

REPORT INFORMATION
  Report Type: 
  Country: None (occurrence: None)
  Receive Date: 20040331
  Receipt Date: 20040318
  Transmission Date: 20041129
  Serious: Yes (Other)
  Sender: FDA-Public Use
  Company Number: 2004204754GB

PATIENT
  Age: 70 Year
  Sex: Female

DRUGS (8)
  1. CELEBREX [Suspect]
     Indication: PAIN
     Dosage: 100 MG, BID, ORAL
     Route: 048
     Dates: start: 20040216, end: 20040226
  2. ASPIRIN [Concomitant]
  3. TEMAZEPAM [Concomitant]
  4. ACETAMINOPHEN [Concomitant]
  5. BACLOFEN [Concomitant]
  6. SALBUTAMOL (SALBUTAMOL) [Concomitant]
  7. VERAPAMIL [Concomitant]
  8. COMBIVENT [Concomitant]

REACTIONS (1)
  - GRAND MAL CONVULSION [None]
